FAERS Safety Report 8398241-4 (Version None)
Quarter: 2012Q2

REPORT INFORMATION
  Report Type: 
  Country: None (occurrence: None)
  Receive Date: 20120531
  Receipt Date: 20120522
  Transmission Date: 20120825
  Serious: Yes (Other)
  Sender: FDA-Public Use
  Company Number: JP-GENZYME-THYM-1003252

PATIENT
  Age: 74 Year
  Sex: Female
  Weight: 51 kg

DRUGS (1)
  1. THYMOGLOBULIN [Suspect]
     Indication: APLASTIC ANAEMIA
     Dosage: 125 MG, QD
     Route: 042
     Dates: start: 20120521

REACTIONS (1)
  - LIVER DISORDER [None]
